FAERS Safety Report 8995236 (Version 1)
Quarter: 2012Q4

REPORT INFORMATION
  Report Type: Spontaneous
  Country: FR (occurrence: None)
  Receive Date: 20121221
  Receipt Date: 20121221
  Transmission Date: 20130627
  Serious: Yes (Life-Threatening, Other)
  Sender: FDA-Public Use
  Company Number: DSA_61362_2012

PATIENT
  Age: 67 Year
  Sex: Female

DRUGS (12)
  1. RENITEC [Suspect]
     Indication: PRODUCT USED FOR UNKNOWN INDICATION
     Route: 048
     Dates: end: 20121007
  2. LASILIX [Suspect]
     Indication: PRODUCT USED FOR UNKNOWN INDICATION
     Dates: end: 20121007
  3. VOLTAREN [Suspect]
     Indication: PRODUCT USED FOR UNKNOWN INDICATION
     Route: 048
     Dates: end: 20121007
  4. GLUCOPHAGE [Suspect]
     Route: 048
     Dates: end: 20121007
  5. AUGMENTIN /00756801/ [Concomitant]
  6. AMLODIPINE [Concomitant]
  7. CLOPIDOGREL [Concomitant]
  8. KARDEGIC [Concomitant]
  9. PRAVASTATIN SODIUM [Concomitant]
  10. OMEPRAZOLE [Concomitant]
  11. OFLOCET /00731801/ [Concomitant]
  12. ULTRA LEVURE [Concomitant]

REACTIONS (8)
  - Diarrhoea [None]
  - Renal failure acute [None]
  - Blood sodium decreased [None]
  - Hyperkalaemia [None]
  - Haemoglobin decreased [None]
  - Acidosis [None]
  - Dialysis [None]
  - Hypovolaemia [None]
